FAERS Safety Report 4401288-3 (Version None)
Quarter: 2004Q3

REPORT INFORMATION
  Report Type: 
  Country: None (occurrence: None)
  Receive Date: 20040907
  Receipt Date: 20040212
  Transmission Date: 20050211
  Serious: Yes (Hospitalization)
  Sender: FDA-Public Use
  Company Number: US-BRISTOL-MYERS SQUIBB COMPANY-12503975

PATIENT
  Sex: Female
  Weight: 84 kg

DRUGS (6)
  1. COUMADIN [Suspect]
     Indication: ATRIAL FIBRILLATION
     Dates: start: 19970101
  2. GLUCOTROL [Concomitant]
     Dates: start: 19970101
  3. DIGOXIN [Concomitant]
     Dates: start: 19970101
  4. SYNTHROID [Concomitant]
     Dates: start: 19970101
  5. ENALAPRIL MALEATE [Concomitant]
     Dates: start: 19970101
  6. GEMFIBROZIL [Concomitant]
     Dates: start: 19970101

REACTIONS (2)
  - CARTILAGE INJURY [None]
  - EYE HAEMORRHAGE [None]
